FAERS Safety Report 6368745-4 (Version None)
Quarter: 2009Q3

REPORT INFORMATION
  Report Type: 
  Country: None (occurrence: None)
  Receive Date: 20090917
  Receipt Date: 20090917
  Transmission Date: 20100115
  Serious: Yes (Disabling)
  Sender: FDA-Public Use
  Company Number: None

PATIENT
  Sex: Female
  Weight: 59.8748 kg

DRUGS (4)
  1. LEVAQUIN [Suspect]
     Indication: INFLUENZA
     Dosage: 500MG 1 PER DAY MOUTH
     Route: 048
     Dates: start: 20090301
  2. LEVAQUIN [Suspect]
     Indication: TENDONITIS
     Dosage: 500MG 1 PER DAY MOUTH
     Route: 048
     Dates: start: 20090301
  3. LEVAQUIN [Suspect]
     Indication: INFLUENZA
     Dosage: 500MG 1 PER DAY MOUTH
     Route: 048
     Dates: start: 20090401
  4. LEVAQUIN [Suspect]
     Indication: TENDONITIS
     Dosage: 500MG 1 PER DAY MOUTH
     Route: 048
     Dates: start: 20090401

REACTIONS (6)
  - ARTHRALGIA [None]
  - CONDITION AGGRAVATED [None]
  - INJURY [None]
  - MUSCULOSKELETAL PAIN [None]
  - PAIN IN EXTREMITY [None]
  - TENDON DISORDER [None]
